FAERS Safety Report 10534678 (Version 19)
Quarter: 2017Q3

REPORT INFORMATION
  Report Type: Spontaneous
  Country: US (occurrence: US)
  Receive Date: 20141022
  Receipt Date: 20170710
  Transmission Date: 20171127
  Serious: Yes (Hospitalization, Disabling, Other)
  Sender: FDA-Public Use
  Company Number: US-009507513-1410USA011133

PATIENT
  Sex: Female
  Weight: 92.97 kg

DRUGS (3)
  1. NUVARING [Suspect]
     Active Substance: ETHINYL ESTRADIOL\ETONOGESTREL
     Indication: MENSTRUATION IRREGULAR
     Dosage: 3 WEEKS IN, ONE WEEK OUT
     Route: 067
     Dates: start: 20080501, end: 20140116
  2. NUVARING [Suspect]
     Active Substance: ETHINYL ESTRADIOL\ETONOGESTREL
     Indication: CONTRACEPTION
  3. NUVARING [Suspect]
     Active Substance: ETHINYL ESTRADIOL\ETONOGESTREL
     Indication: DYSMENORRHOEA

REACTIONS (21)
  - Mood altered [Recovering/Resolving]
  - Smear cervix abnormal [Unknown]
  - Vocal cord polypectomy [Unknown]
  - Off label use [Unknown]
  - Depressed mood [Unknown]
  - Tonsillectomy [Unknown]
  - Fatigue [Unknown]
  - Seizure [Recovered/Resolved]
  - Road traffic accident [Recovered/Resolved]
  - Cerebrovascular accident [Not Recovered/Not Resolved]
  - Adjustment disorder with depressed mood [Unknown]
  - Pharyngitis [Unknown]
  - Muscle spasticity [Not Recovered/Not Resolved]
  - Vitamin D decreased [Unknown]
  - Femur fracture [Unknown]
  - Vocal cord thickening [Unknown]
  - Urinary tract infection [Unknown]
  - Benign neoplasm [Unknown]
  - Meniscus injury [Unknown]
  - Insomnia [Not Recovered/Not Resolved]
  - Ligament rupture [Unknown]

NARRATIVE: CASE EVENT DATE: 2009
